FAERS Safety Report 22216191 (Version 1)
Quarter: 2023Q2

REPORT INFORMATION
  Report Type: Spontaneous
  Country: None (occurrence: CN)
  Receive Date: 20230417
  Receipt Date: 20230417
  Transmission Date: 20230722
  Serious: Yes (Life-Threatening)
  Sender: FDA-Public Use
  Company Number: CN-Jiangsu Hengrui Medicine Co., Ltd.-2140432

PATIENT
  Age: 44 Year
  Sex: Male
  Weight: 47 kg

DRUGS (4)
  1. OXALIPLATIN [Suspect]
     Active Substance: OXALIPLATIN
     Indication: Hepatic cancer
     Dates: start: 20230404, end: 20230404
  2. DEXTROSE [Suspect]
     Active Substance: DEXTROSE\DEXTROSE MONOHYDRATE
     Dates: start: 20230404, end: 20230404
  3. FLUOROURACIL [Concomitant]
     Active Substance: FLUOROURACIL
     Dates: start: 20230404, end: 20230404
  4. SODIUM CHLORIDE [Concomitant]
     Active Substance: SODIUM CHLORIDE
     Dates: start: 20230404, end: 20230404

REACTIONS (3)
  - Hypertension [Recovering/Resolving]
  - Dysphoria [Recovering/Resolving]
  - Peripheral sensory neuropathy [Recovering/Resolving]

NARRATIVE: CASE EVENT DATE: 20230404
